FAERS Safety Report 7606428-0 (Version None)
Quarter: 2011Q3

REPORT INFORMATION
  Report Type: 
  Country: None (occurrence: None)
  Receive Date: 20110705
  Receipt Date: 20110613
  Transmission Date: 20111222
  Serious: Yes (Other)
  Sender: FDA-Public Use
  Company Number: 2010SP058696

PATIENT
  Age: 18 Year
  Sex: Female

DRUGS (2)
  1. IMPLANON [Suspect]
     Indication: CONTRACEPTION
     Dosage: ;SBDE
     Route: 059
     Dates: start: 20100727
  2. LAMOTRIGINE [Suspect]
     Indication: EPILEPSY
     Dosage: 175 MG;BID;

REACTIONS (7)
  - DRUG INTERACTION [None]
  - INCREASED TENDENCY TO BRUISE [None]
  - EPILEPSY [None]
  - ANAEMIA [None]
  - MENORRHAGIA [None]
  - FATIGUE [None]
  - DYSMENORRHOEA [None]
